FAERS Safety Report 19905533 (Version 1)
Quarter: 2021Q3

REPORT INFORMATION
  Report Type: Spontaneous
  Country: CA (occurrence: CA)
  Receive Date: 20210930
  Receipt Date: 20210930
  Transmission Date: 20211014
  Serious: Yes (Other)
  Sender: FDA-Public Use
  Company Number: CA-PFIZER INC-202101265242

PATIENT
  Age: 52 Year
  Sex: Female
  Weight: 100 kg

DRUGS (1)
  1. METHOTREXATE SODIUM. [Suspect]
     Active Substance: METHOTREXATE SODIUM
     Dosage: 1 DF, WEEKLY

REACTIONS (2)
  - Arthritis [Unknown]
  - Peripheral swelling [Unknown]
